FAERS Safety Report 21208797 (Version 3)
Quarter: 2022Q3

REPORT INFORMATION
  Report Type: Report from Study
  Country: FR (occurrence: FR)
  Receive Date: 20220812
  Receipt Date: 20220915
  Transmission Date: 20221026
  Serious: Yes (Other)
  Sender: FDA-Public Use
  Company Number: FR-GLAXOSMITHKLINE-FR2020GSK094134

PATIENT

DRUGS (16)
  1. DOSTARLIMAB [Suspect]
     Active Substance: DOSTARLIMAB
     Indication: Ovarian cancer
     Dosage: 500 MG, Z-EVERY 3 WEEKS
     Route: 042
     Dates: start: 20200220, end: 20200220
  2. CARBOPLATIN [Suspect]
     Active Substance: CARBOPLATIN
     Indication: Ovarian cancer
     Dosage: 5 AUC
     Route: 042
     Dates: start: 20200128, end: 20200128
  3. CARBOPLATIN [Suspect]
     Active Substance: CARBOPLATIN
     Dosage: 500 AUC (EVERY 3 WEEKS)
     Route: 042
     Dates: start: 20200220, end: 20200220
  4. CARBOPLATIN [Suspect]
     Active Substance: CARBOPLATIN
     Dosage: 5 AUC (EVERY 3 WEEKS)
     Route: 042
     Dates: start: 20200401, end: 20200401
  5. PACLITAXEL [Suspect]
     Active Substance: PACLITAXEL
     Indication: Ovarian cancer
     Dosage: 300 MG
     Route: 042
     Dates: start: 20200128, end: 20200128
  6. PACLITAXEL [Suspect]
     Active Substance: PACLITAXEL
     Dosage: 175 MG/M2, Z
     Route: 042
     Dates: start: 20200220, end: 20200220
  7. PACLITAXEL [Suspect]
     Active Substance: PACLITAXEL
     Dosage: 300 MG/M2, Z ( EVERY 3 WEEKS)
     Route: 042
     Dates: start: 20200401, end: 20200401
  8. BEVACIZUMAB [Suspect]
     Active Substance: BEVACIZUMAB
     Indication: Ovarian cancer
     Dosage: 15 MG/KG, Z
     Route: 042
     Dates: start: 20200220, end: 20200220
  9. BEVACIZUMAB [Suspect]
     Active Substance: BEVACIZUMAB
     Dosage: UNK
     Route: 042
     Dates: end: 20200310
  10. BEVACIZUMAB [Suspect]
     Active Substance: BEVACIZUMAB
     Dosage: 875 MG/KG, Z
     Route: 042
     Dates: start: 20200401, end: 20200401
  11. PAROXETINE HYDROCHLORIDE [Concomitant]
     Active Substance: PAROXETINE HYDROCHLORIDE
     Indication: Anxiety
     Dosage: 20 MG, SINGLE
     Route: 048
     Dates: start: 2000
  12. VALIUM [Concomitant]
     Active Substance: DIAZEPAM
     Indication: Anxiety
     Dosage: 5 MG, SINGLE
     Route: 048
     Dates: start: 2000
  13. INIPOMP [Concomitant]
     Active Substance: PANTOPRAZOLE SODIUM
     Indication: Gastrointestinal disorder prophylaxis
     Dosage: 20 MG, QD
     Route: 048
     Dates: start: 20200325
  14. APREPITANT [Concomitant]
     Active Substance: APREPITANT
     Indication: Premedication
     Dosage: 125 MG
     Route: 048
     Dates: start: 20200220
  15. CISPLATIN [Concomitant]
     Active Substance: CISPLATIN
     Indication: Ovarian cancer
     Dosage: UNK
     Route: 042
  16. DOCETAXEL [Concomitant]
     Active Substance: DOCETAXEL
     Indication: Ovarian cancer
     Dosage: UNK
     Route: 042

REACTIONS (4)
  - Alanine aminotransferase increased [Recovered/Resolved]
  - Aspartate aminotransferase increased [Recovered/Resolved]
  - Basedow^s disease [Recovered/Resolved]
  - Autoimmune hypothyroidism [Recovered/Resolved]

NARRATIVE: CASE EVENT DATE: 20200317
